FAERS Safety Report 7215029-8 (Version None)
Quarter: 2011Q1

REPORT INFORMATION
  Report Type: 
  Country: None (occurrence: None)
  Receive Date: 20110107
  Receipt Date: 20100715
  Transmission Date: 20110831
  Serious: No
  Sender: FDA-Public Use
  Company Number: A0870651A

PATIENT
  Age: 65 Year
  Sex: Female

DRUGS (11)
  1. LOVAZA [Suspect]
     Dosage: 2CAPL TWICE PER DAY
     Route: 048
     Dates: start: 20100401, end: 20100701
  2. CALCIUM [Concomitant]
  3. CARBAMAZEPINE [Concomitant]
  4. HYDROCHLOROTHIAZIDE [Concomitant]
  5. ZETIA [Concomitant]
  6. LYRICA [Concomitant]
  7. MULTIVITAMIN [Concomitant]
  8. ZINC [Concomitant]
  9. LEVOTHYROXINE [Concomitant]
  10. ATENOLOL [Concomitant]
  11. BENICAR [Concomitant]

REACTIONS (1)
  - CONSTIPATION [None]
